FAERS Safety Report 9280081 (Version 1)
Quarter: 2013Q2

REPORT INFORMATION
  Report Type: Spontaneous
  Country: KR (occurrence: KR)
  Receive Date: 20130509
  Receipt Date: 20130509
  Transmission Date: 20140414
  Serious: Yes (Other)
  Sender: FDA-Public Use
  Company Number: KR-JNJFOC-20130416973

PATIENT
  Age: 6 Year
  Sex: Female

DRUGS (1)
  1. CHILDREN^S TYLENOL [Suspect]
     Indication: PYREXIA
     Route: 048
     Dates: start: 2012

REACTIONS (1)
  - Hepatic enzyme increased [Recovered/Resolved]
